FAERS Safety Report 24524321 (Version 1)
Quarter: 2024Q4

REPORT INFORMATION
  Report Type: Spontaneous
  Country: JP (occurrence: JP)
  Receive Date: 20241018
  Receipt Date: 20241018
  Transmission Date: 20250115
  Serious: Yes (Life-Threatening, Hospitalization, Other)
  Sender: MALLINCKRODT
  Company Number: JP-MALLINCKRODT-MNK202406402

PATIENT
  Age: 0 Day
  Weight: 3 kg

DRUGS (1)
  1. NITRIC OXIDE [Suspect]
     Active Substance: NITRIC OXIDE
     Indication: Neonatal pulmonary hypertension
     Dosage: UNKNOWN
     Route: 055

REACTIONS (7)
  - Circulatory collapse [Unknown]
  - Respiratory failure [Not Recovered/Not Resolved]
  - Heart disease congenital [Not Recovered/Not Resolved]
  - Haemofiltration [Unknown]
  - Transfusion [Unknown]
  - Cerebral haemorrhage [Unknown]
  - Blood bilirubin increased [Unknown]
